FAERS Safety Report 9980534 (Version 1)
Quarter: 2014Q1

REPORT INFORMATION
  Report Type: Spontaneous
  Country: US (occurrence: None)
  Receive Date: 20140305
  Receipt Date: 20140305
  Transmission Date: 20141002
  Serious: Yes (Hospitalization)
  Sender: FDA-Public Use
  Company Number: None

PATIENT
  Sex: Male
  Weight: 81 kg

DRUGS (14)
  1. LOVENOX [Suspect]
     Indication: ATRIAL FIBRILLATION
     Route: 058
     Dates: start: 20140220, end: 20140225
  2. LOVENOX [Suspect]
     Indication: CORONARY ARTERY BYPASS
     Route: 058
     Dates: start: 20140220, end: 20140225
  3. AMLODIPINE (NORVASC) [Concomitant]
  4. ASPIRIN [Concomitant]
  5. CHOLECALCIFEROL [Concomitant]
  6. GLARGINE (LANTUS) [Concomitant]
  7. INSULIN LISPRO HUMAN (HUMALOG) [Concomitant]
  8. METOPROLOL TARTRATE (LOPRESSOR) [Concomitant]
  9. ROSUVASTATIN (CRESTOR) [Concomitant]
  10. WARFARIN (COUMADIN) [Concomitant]
  11. GLUCOSE BLOOD STRIP [Concomitant]
  12. HYDROCODONE/ACETAMINOPHEN (VICODIN OR NORCO) [Concomitant]
  13. LANCETS [Concomitant]
  14. SULCONAZOLE NITRATE (EXELDERM) [Concomitant]

REACTIONS (2)
  - Dyspnoea [None]
  - Heparin-induced thrombocytopenia [None]
